APPROVED DRUG PRODUCT: CHIBROXIN
Active Ingredient: NORFLOXACIN
Strength: 0.3%
Dosage Form/Route: SOLUTION/DROPS;OPHTHALMIC
Application: N019757 | Product #001
Applicant: MERCK RESEARCH LABORATORIES DIV MERCK CO INC
Approved: Jun 17, 1991 | RLD: No | RS: No | Type: DISCN